FAERS Safety Report 10437962 (Version 4)
Quarter: 2014Q4

REPORT INFORMATION
  Report Type: Spontaneous
  Country: US (occurrence: US)
  Receive Date: 20140908
  Receipt Date: 20141111
  Transmission Date: 20150528
  Serious: Yes (Hospitalization, Other)
  Sender: FDA-Public Use
  Company Number: US-RB PHARMACEUTICALS LIMITED-RB-68701-2014

PATIENT
  Age: 42 Year
  Sex: Female

DRUGS (11)
  1. XANAX [Concomitant]
     Active Substance: ALPRAZOLAM
     Indication: ANXIETY
     Dosage: 0.25 MG, AS NEEDED
     Route: 048
     Dates: start: 2001
  2. SUBOXONE [Suspect]
     Active Substance: BUPRENORPHINE HYDROCHLORIDE\NALOXONE HYDROCHLORIDE
     Dosage: CUTTING AND TAKING PRESCRIBED DOSAGE OF TWO-THIRD OF THE FILM
     Route: 060
  3. HYDROCODONE [Suspect]
     Active Substance: HYDROCODONE
     Indication: BACK PAIN
     Dosage: UNK
     Route: 065
     Dates: start: 2008, end: 201403
  4. LEVOTHYROXINE [Concomitant]
     Active Substance: LEVOTHYROXINE
     Indication: HYPOTHYROIDISM
     Dosage: 0.75 MG, ONCE DAILY IN MORNING
     Route: 048
     Dates: start: 2006
  5. SUBOXONE [Suspect]
     Active Substance: BUPRENORPHINE HYDROCHLORIDE\NALOXONE HYDROCHLORIDE
     Indication: DRUG DEPENDENCE
     Dosage: CUT THE FILM TO ACHIEVE DOSING AND TOOK 4 MG DOSE ONCE
     Route: 060
     Dates: start: 201402, end: 201402
  6. HYDROCODONE [Suspect]
     Active Substance: HYDROCODONE
     Indication: NECK PAIN
  7. OMEPRAZOLE. [Concomitant]
     Active Substance: OMEPRAZOLE
     Indication: GASTROINTESTINAL DISORDER
     Dosage: DOSING DETAILS UNKNOWN, DAILY
     Route: 048
     Dates: start: 2005
  8. SUBOXONE [Suspect]
     Active Substance: BUPRENORPHINE HYDROCHLORIDE\NALOXONE HYDROCHLORIDE
     Dosage: TAPERED TO 4 MG IN THE MORNING AND 2 MG IN THE EVENING BY CUTTING THE FILM
     Route: 060
     Dates: start: 201404
  9. SUBOXONE [Suspect]
     Active Substance: BUPRENORPHINE HYDROCHLORIDE\NALOXONE HYDROCHLORIDE
     Dosage: CUTTING HALF OF 8MG SUBOXONE FILM AND TAKING ONCE DAILY
     Route: 060
  10. SUBOXONE [Suspect]
     Active Substance: BUPRENORPHINE HYDROCHLORIDE\NALOXONE HYDROCHLORIDE
     Dosage: 16 MG DAILY
     Route: 060
     Dates: start: 201403, end: 201404
  11. OMEPRAZOLE. [Concomitant]
     Active Substance: OMEPRAZOLE
     Indication: GASTROOESOPHAGEAL REFLUX DISEASE

REACTIONS (18)
  - Hallucination, visual [Recovered/Resolved]
  - Chills [Recovered/Resolved]
  - Asthenia [Recovered/Resolved]
  - Drug abuse [Recovered/Resolved]
  - Somnolence [Recovered/Resolved]
  - Loss of consciousness [Not Recovered/Not Resolved]
  - Dysuria [Recovering/Resolving]
  - Oedema peripheral [Recovering/Resolving]
  - Piloerection [Recovered/Resolved]
  - Substance abuse [Recovered/Resolved]
  - Weight increased [Recovered/Resolved]
  - Wrong technique in drug usage process [Not Recovered/Not Resolved]
  - Hallucination, auditory [Recovered/Resolved]
  - Tremor [Recovered/Resolved]
  - Impaired driving ability [Recovered/Resolved]
  - Malaise [Recovering/Resolving]
  - Feeling cold [Recovered/Resolved]
  - Drug withdrawal syndrome [Recovered/Resolved]

NARRATIVE: CASE EVENT DATE: 201402
